FAERS Safety Report 18351735 (Version 1)
Quarter: 2020Q4

REPORT INFORMATION
  Report Type: Spontaneous
  Country: PL (occurrence: PL)
  Receive Date: 20201006
  Receipt Date: 20201006
  Transmission Date: 20210114
  Serious: Yes (Death, Hospitalization, Other)
  Sender: FDA-Public Use
  Company Number: PL-B.I. PHARMACEUTICALS,INC./RIDGEFIELD-2020-BI-033177

PATIENT
  Age: 85 Year
  Sex: Female
  Weight: 80 kg

DRUGS (1)
  1. PRADAXA [Suspect]
     Active Substance: DABIGATRAN ETEXILATE MESYLATE
     Indication: ATRIAL FIBRILLATION
     Dosage: UNKNOWN DOSE

REACTIONS (6)
  - Aortic dissection [Fatal]
  - Swelling [Unknown]
  - Brain herniation [Unknown]
  - Brain oedema [Unknown]
  - Cardiogenic shock [Unknown]
  - Ischaemic stroke [Unknown]
